FAERS Safety Report 12918275 (Version 1)
Quarter: 2016Q4

REPORT INFORMATION
  Report Type: Spontaneous
  Country: DE (occurrence: DE)
  Receive Date: 20161107
  Receipt Date: 20161107
  Transmission Date: 20170207
  Serious: Yes (Other)
  Sender: FDA-Public Use
  Company Number: DE-PFIZER INC-2016477706

PATIENT
  Age: 68 Year
  Sex: Female
  Weight: 47 kg

DRUGS (2)
  1. LATANOPROST PFIZER [Suspect]
     Active Substance: LATANOPROST
     Dosage: UNK
  2. LATANOPROST PFIZER [Suspect]
     Active Substance: LATANOPROST
     Indication: GLAUCOMA
     Dosage: UNK
     Dates: start: 20160920, end: 20161020

REACTIONS (2)
  - Herpes dermatitis [Recovered/Resolved]
  - Oral herpes [Recovered/Resolved]

NARRATIVE: CASE EVENT DATE: 20160923
